FAERS Safety Report 5398866-4 (Version None)
Quarter: 2007Q3

REPORT INFORMATION
  Report Type: 
  Country: None (occurrence: None)
  Receive Date: 20070727
  Receipt Date: 20070719
  Transmission Date: 20080115
  Serious: Yes (Other)
  Sender: FDA-Public Use
  Company Number: PHHO2007VE04399

PATIENT
  Sex: Female

DRUGS (6)
  1. VASTAREL [Concomitant]
     Dates: end: 20061201
  2. CONCOR [Concomitant]
     Dates: end: 20061201
  3. LASIX [Concomitant]
     Dates: end: 20061201
  4. ASPIRIN [Concomitant]
     Dates: end: 20061201
  5. DIOVAN [Suspect]
     Indication: HYPERTENSION
     Dosage: 40 MG, BID
     Dates: end: 20061201
  6. DIOVAN [Suspect]
     Dosage: 40 MG, BID
     Dates: start: 20070125

REACTIONS (3)
  - MUSCLE SPASMS [None]
  - RENAL FAILURE [None]
  - URINARY TRACT INFECTION [None]
